FAERS Safety Report 7645467-0 (Version None)
Quarter: 2011Q3

REPORT INFORMATION
  Report Type: 
  Country: None (occurrence: None)
  Receive Date: 20110729
  Receipt Date: 20110718
  Transmission Date: 20111222
  Serious: Yes (Hospitalization)
  Sender: FDA-Public Use
  Company Number: BR-ELI_LILLY_AND_COMPANY-BR201107004876

PATIENT
  Sex: Female
  Weight: 60 kg

DRUGS (1)
  1. CYMBALTA [Suspect]
     Indication: HERPES ZOSTER
     Dosage: 60 MG, EACH MORNING
     Route: 048

REACTIONS (5)
  - OFF LABEL USE [None]
  - DRY MOUTH [None]
  - TACHYCARDIA [None]
  - POISONING [None]
  - VOMITING [None]
